FAERS Safety Report 7378285-1 (Version None)
Quarter: 2011Q1

REPORT INFORMATION
  Report Type: 
  Country: None (occurrence: None)
  Receive Date: 20110328
  Receipt Date: 20110324
  Transmission Date: 20110831
  Serious: Yes (Hospitalization, Other)
  Sender: FDA-Public Use
  Company Number: BR-ABBOTT-10P-020-0624338-00

PATIENT
  Sex: Female
  Weight: 82 kg

DRUGS (3)
  1. HUMIRA [Suspect]
     Indication: PSORIATIC ARTHROPATHY
     Route: 058
     Dates: start: 20090201, end: 20091201
  2. HUMIRA [Suspect]
     Indication: RHEUMATOID ARTHRITIS
     Dates: start: 20091201, end: 20100201
  3. MICROLAX [Concomitant]
     Indication: PAIN
     Route: 048
     Dates: start: 20080101

REACTIONS (17)
  - PSORIASIS [None]
  - RHINITIS [None]
  - BONE PAIN [None]
  - COUGH [None]
  - DIABETES MELLITUS [None]
  - PNEUMONIA [None]
  - SNEEZING [None]
  - ENDOMETRIOSIS [None]
  - LUNG INFECTION [None]
  - WEIGHT DECREASED [None]
  - INFLUENZA [None]
  - HEADACHE [None]
  - UTERINE POLYP [None]
  - VAGINAL HAEMORRHAGE [None]
  - WEIGHT INCREASED [None]
  - FEELING ABNORMAL [None]
  - OROPHARYNGEAL PAIN [None]
